FAERS Safety Report 8525313-3 (Version None)
Quarter: 2012Q3

REPORT INFORMATION
  Report Type: 
  Country: None (occurrence: None)
  Receive Date: 20120720
  Receipt Date: 20120718
  Transmission Date: 20120928
  Serious: Yes (Death, Hospitalization)
  Sender: FDA-Public Use
  Company Number: PHEH2012US012383

PATIENT
  Sex: Female

DRUGS (1)
  1. TOBI [Suspect]
     Indication: PNEUMONIA BACTERIAL
     Dosage: 300 MG, BID
     Dates: start: 20110629

REACTIONS (1)
  - DEATH [None]
